FAERS Safety Report 13997559 (Version 1)
Quarter: 2017Q3

REPORT INFORMATION
  Report Type: Spontaneous
  Country: US (occurrence: US)
  Receive Date: 20170921
  Receipt Date: 20170921
  Transmission Date: 20171128
  Serious: No
  Sender: FDA-Public Use
  Company Number: US-ALLERGAN-1703398US

PATIENT
  Age: 67 Year
  Sex: Female
  Weight: 73.48 kg

DRUGS (4)
  1. VALIUM [Concomitant]
     Active Substance: DIAZEPAM
     Indication: ANXIETY
     Dosage: 10 MG, PRN
     Route: 048
  2. SUCRALFATE UNK [Suspect]
     Active Substance: SUCRALFATE
     Indication: GASTRIC ULCER
  3. LUNESTA [Concomitant]
     Active Substance: ESZOPICLONE
     Indication: INSOMNIA
     Dosage: UNK UNK, PRN
  4. SUCRALFATE UNK [Suspect]
     Active Substance: SUCRALFATE
     Indication: GASTROOESOPHAGEAL REFLUX DISEASE
     Dosage: UNK UNK, TID
     Dates: start: 20170124, end: 20170124

REACTIONS (3)
  - Acne [Unknown]
  - Product use in unapproved indication [Unknown]
  - Oedema peripheral [Unknown]

NARRATIVE: CASE EVENT DATE: 20170125
